FAERS Safety Report 10582768 (Version 2)
Quarter: 2014Q4

REPORT INFORMATION
  Report Type: Spontaneous
  Country: TR (occurrence: TR)
  Receive Date: 20141113
  Receipt Date: 20141119
  Transmission Date: 20150529
  Serious: Yes (Hospitalization)
  Sender: FDA-Public Use
  Company Number: TR-MYLANLABS-2014M1009974

PATIENT

DRUGS (4)
  1. GENTAMICIN. [Suspect]
     Active Substance: GENTAMICIN
     Indication: LISTERIA ENCEPHALITIS
     Dosage: 80 MG, Q8H
     Route: 065
  2. AMPICILLIN [Suspect]
     Active Substance: AMPICILLIN
     Indication: LISTERIA ENCEPHALITIS
     Dosage: 2 G, Q4H
     Route: 065
  3. PREDNISOLONE. [Suspect]
     Active Substance: PREDNISOLONE
     Indication: POLYMYOSITIS
     Dosage: 60 MG, QD
     Route: 065
  4. PREDNISOLONE. [Suspect]
     Active Substance: PREDNISOLONE
     Dosage: 4 MG, QW

REACTIONS (7)
  - Cytomegalovirus hepatitis [Recovered/Resolved]
  - Blood glucose increased [None]
  - Listeria encephalitis [Recovered/Resolved]
  - Musculoskeletal stiffness [None]
  - Hepatotoxicity [Recovering/Resolving]
  - Nephropathy toxic [Unknown]
  - Hemiplegia [None]
